FAERS Safety Report 4499154-0 (Version None)
Quarter: 2004Q4

REPORT INFORMATION
  Report Type: 
  Country: None (occurrence: None)
  Receive Date: 20041110
  Receipt Date: 20041110
  Transmission Date: 20050328
  Serious: Yes (Hospitalization)
  Sender: FDA-Public Use
  Company Number: None

PATIENT
  Sex: Male
  Weight: 100.6985 kg

DRUGS (15)
  1. VELCADE [Suspect]
     Indication: NON-HODGKIN'S LYMPHOMA
     Dosage: 2.2 MG DAYS 4 IV
     Route: 042
     Dates: start: 20041015
  2. VELCADE [Suspect]
     Indication: NON-HODGKIN'S LYMPHOMA
     Dosage: 2.2 MG DAYS 4 IV
     Route: 042
     Dates: start: 20041018
  3. VELCADE [Suspect]
     Indication: NON-HODGKIN'S LYMPHOMA
     Dosage: 2.2 MG DAYS 4 IV
     Route: 042
     Dates: start: 20041105
  4. VELCADE [Suspect]
     Indication: NON-HODGKIN'S LYMPHOMA
     Dosage: 2.2 MG DAYS 4 IV
     Route: 042
     Dates: start: 20041108
  5. CHOP [Suspect]
     Dates: start: 20041015
  6. CHOP [Suspect]
     Dates: start: 20041105
  7. RITUXIMAB [Suspect]
  8. KEFLEX [Concomitant]
  9. GLIPIZIDE [Concomitant]
  10. AVANDIA [Concomitant]
  11. COUMADIN [Concomitant]
  12. COLACE [Concomitant]
  13. VALTREX [Concomitant]
  14. DIFLUCAN [Concomitant]
  15. CELEXA [Concomitant]

REACTIONS (1)
  - CELLULITIS [None]
